FAERS Safety Report 12655795 (Version 1)
Quarter: 2016Q3

REPORT INFORMATION
  Report Type: Spontaneous
  Country: US (occurrence: US)
  Receive Date: 20160816
  Receipt Date: 20160816
  Transmission Date: 20161109
  Serious: No
  Sender: FDA-Public Use
  Company Number: US-PFIZER INC-2016380506

PATIENT
  Sex: Female

DRUGS (2)
  1. LYRICA [Suspect]
     Active Substance: PREGABALIN
     Indication: NERVE INJURY
     Dosage: 25 MG, UNK
  2. LYRICA [Suspect]
     Active Substance: PREGABALIN
     Indication: SPINAL DISORDER
     Dosage: 50 MG, UNK

REACTIONS (13)
  - Flushing [Unknown]
  - Swelling [Unknown]
  - Headache [Unknown]
  - Ear discomfort [Unknown]
  - Contusion [Unknown]
  - Drug hypersensitivity [Unknown]
  - Paranasal sinus discomfort [Unknown]
  - Somnolence [Unknown]
  - Constipation [Recovering/Resolving]
  - Abdominal distension [Recovering/Resolving]
  - Joint swelling [Recovering/Resolving]
  - Weight increased [Unknown]
  - Tinnitus [Unknown]
